FAERS Safety Report 6178632-2 (Version None)
Quarter: 2009Q2

REPORT INFORMATION
  Report Type: 
  Country: None (occurrence: None)
  Receive Date: 20090504
  Receipt Date: 20080922
  Transmission Date: 20091009
  Serious: No
  Sender: FDA-Public Use
  Company Number: US-ALEXION-A200800235

PATIENT

DRUGS (13)
  1. SOLIRIS [Suspect]
     Indication: PAROXYSMAL NOCTURNAL HAEMOGLOBINURIA
     Dosage: 600 MG, QW
     Route: 042
     Dates: start: 20080916
  2. CARVEDILOL [Concomitant]
     Indication: BLOOD PRESSURE
     Dosage: 6.25 MG, QD
  3. DIOVAN                             /01319601/ [Concomitant]
     Indication: BLOOD PRESSURE
     Dosage: 40 MG, QD
  4. ASPIRIN [Concomitant]
     Indication: CARDIAC DISORDER
     Dosage: 81 MG, QD
  5. PREDNISONE [Concomitant]
     Indication: PAROXYSMAL NOCTURNAL HAEMOGLOBINURIA
     Dosage: 5 MG, QD
  6. FOLIC ACID [Concomitant]
     Indication: PAROXYSMAL NOCTURNAL HAEMOGLOBINURIA
     Dosage: UNK, QD
  7. INSULIN RAPID                      /00030501/ [Concomitant]
     Indication: DIABETES MELLITUS
     Dosage: 100 IU, UNK
  8. BISACODYL [Concomitant]
     Indication: CONSTIPATION
     Dosage: 2 TABS, HS
  9. FERROUS SULFATE TAB [Concomitant]
     Indication: ANAEMIA
     Dosage: 325 MG, QD
  10. DOXEPIN HCL [Concomitant]
     Indication: DEPRESSION
     Dosage: 10 MG, QD
  11. MULTIVITAMIN                       /00831701/ [Concomitant]
  12. FAMOTIDINE [Concomitant]
     Dosage: 20 MG, QD
  13. NIFEDICAL [Concomitant]
     Dosage: 30 MG, QD

REACTIONS (3)
  - ARTHRALGIA [None]
  - HEADACHE [None]
  - JOINT STIFFNESS [None]
